FAERS Safety Report 8520815-8 (Version None)
Quarter: 2012Q3

REPORT INFORMATION
  Report Type: 
  Country: None (occurrence: None)
  Receive Date: 20120719
  Receipt Date: 20120710
  Transmission Date: 20120928
  Serious: Yes (Hospitalization)
  Sender: FDA-Public Use
  Company Number: CA-JNJFOC-20120705079

PATIENT
  Sex: Male
  Weight: 48.2 kg

DRUGS (1)
  1. REMICADE [Suspect]
     Indication: CROHN'S DISEASE
     Route: 042
     Dates: start: 20110519

REACTIONS (3)
  - DEHYDRATION [None]
  - VITAMIN B12 DECREASED [None]
  - BLOOD IRON DECREASED [None]
